FAERS Safety Report 4717719-5 (Version None)
Quarter: 2005Q3

REPORT INFORMATION
  Report Type: 
  Country: None (occurrence: None)
  Receive Date: 20050713
  Receipt Date: 20050506
  Transmission Date: 20060218
  Serious: Yes (Other)
  Sender: FDA-Public Use
  Company Number: HQWYE700912MAY05

PATIENT
  Age: 36 Year
  Sex: Male
  Weight: 83.99 kg

DRUGS (2)
  1. ALAVERT [Suspect]
     Indication: HYPERSENSITIVITY
     Dosage: 1 TABLET 1X PER 1 DAY, ORAL
     Route: 048
     Dates: start: 20050401, end: 20050401
  2. CENTRUM (MULTIVITAMIN/MULTIMINERAL) [Concomitant]

REACTIONS (1)
  - STOMACH DISCOMFORT [None]
